FAERS Safety Report 7560488-4 (Version None)
Quarter: 2011Q2

REPORT INFORMATION
  Report Type: 
  Country: None (occurrence: None)
  Receive Date: 20110621
  Receipt Date: 20110613
  Transmission Date: 20111010
  Serious: Yes (Disabling, Other)
  Sender: FDA-Public Use
  Company Number: US-ABBOTT-10P-163-0684712-00

PATIENT
  Sex: Male
  Weight: 79.45 kg

DRUGS (1)
  1. LUPRON DEPOT [Suspect]
     Indication: PROSTATE CANCER
     Dates: start: 20060501, end: 20061101

REACTIONS (20)
  - NERVOUSNESS [None]
  - BLINDNESS [None]
  - HOT FLUSH [None]
  - DEPRESSION [None]
  - FATIGUE [None]
  - SPINAL COMPRESSION FRACTURE [None]
  - BONE DENSITY DECREASED [None]
  - INJURY [None]
  - PAIN [None]
  - HYPERTENSION [None]
  - CARDIAC DISORDER [None]
  - AMNESIA [None]
  - ARTHRALGIA [None]
  - AFFECT LABILITY [None]
  - SLEEP DISORDER [None]
  - BLADDER DISORDER [None]
  - RHEUMATOID ARTHRITIS [None]
  - ANXIETY [None]
  - DEFORMITY [None]
  - IMPAIRED WORK ABILITY [None]
